FAERS Safety Report 4657439-9 (Version None)
Quarter: 2005Q2

REPORT INFORMATION
  Report Type: 
  Country: None (occurrence: None)
  Receive Date: 20050509
  Receipt Date: 20050509
  Transmission Date: 20051028
  Serious: Yes (Hospitalization, Other)
  Sender: FDA-Public Use
  Company Number: None

PATIENT
  Sex: Male
  Weight: 100.6985 kg

DRUGS (5)
  1. FEEN-A-MINT ORAL, NOT OTHERWISE SPECIFIED [Suspect]
     Indication: CONSTIPATION
     Dosage: 3 X'S A MONTH
     Dates: start: 19620101, end: 19800101
  2. CORRECTOL [Suspect]
     Indication: BOWEL MOVEMENT IRREGULARITY
     Dosage: 3 XS A MONTH ORAL
     Route: 048
     Dates: start: 19800101, end: 19900101
  3. EX-LAX [Suspect]
     Indication: BOWEL MOVEMENT IRREGULARITY
     Dosage: 1 X PER MONTH
     Dates: start: 19950101, end: 19620101
  4. DULCOLAX [Suspect]
     Indication: CONSTIPATION
     Dosage: 2-3 XS PER MO
     Dates: start: 19700101, end: 19720101
  5. FLEET PHOSPHO-SODA [Suspect]
     Indication: CONSTIPATION
     Dosage: 1 XQ  6 MOS
     Dates: start: 19940101

REACTIONS (5)
  - COLON ADENOMA [None]
  - COLON CANCER [None]
  - COLONIC POLYP [None]
  - METASTASES TO LYMPH NODES [None]
  - RECTAL HAEMORRHAGE [None]
